FAERS Safety Report 4500700-9 (Version None)
Quarter: 2004Q4

REPORT INFORMATION
  Report Type: 
  Country: None (occurrence: None)
  Receive Date: 20041112
  Receipt Date: 20041112
  Transmission Date: 20050328
  Serious: Yes (Life-Threatening)
  Sender: FDA-Public Use
  Company Number: None

PATIENT
  Age: 82 Year
  Sex: Female

DRUGS (2)
  1. VIOXX [Suspect]
     Indication: ARTHRITIS
     Dosage: 1 A DAY
     Dates: start: 20010101, end: 20020101
  2. VIOXX [Suspect]
     Indication: PAIN
     Dosage: 1 A DAY
     Dates: start: 20010101, end: 20020101

REACTIONS (1)
  - MYOCARDIAL INFARCTION [None]
